FAERS Safety Report 23041252 (Version 1)
Quarter: 2023Q4

REPORT INFORMATION
  Report Type: Spontaneous
  Country: GB (occurrence: GB)
  Receive Date: 20231007
  Receipt Date: 20231007
  Transmission Date: 20240109
  Serious: Yes (Other)
  Sender: FDA-Public Use
  Company Number: GB-MHRA-MED-202309221350455040-DWMVJ

PATIENT
  Age: 28 Year
  Sex: Male

DRUGS (1)
  1. FINASTERIDE [Suspect]
     Active Substance: FINASTERIDE
     Indication: Androgenetic alopecia
     Dosage: 1MG; ;
     Dates: end: 20170301

REACTIONS (3)
  - Insomnia [Not Recovered/Not Resolved]
  - Medication error [Unknown]
  - Product use in unapproved indication [Unknown]

NARRATIVE: CASE EVENT DATE: 20170201
